FAERS Safety Report 7743280 (Version 4)
Quarter: 2013Q1

REPORT INFORMATION
  Report Type: Report from Study
  Country: JP (occurrence: JP)
  Receive Date: 20101229
  Receipt Date: 20130328
  Transmission Date: 20140127
  Serious: Yes (Life-Threatening, Hospitalization, Other)
  Sender: FDA-Public Use
  Company Number: JP-GENZYME-THYM-1002208

PATIENT
  Age: 14 Year
  Sex: Female
  Weight: 44 kg

DRUGS (8)
  1. THYMOGLOBULIN [Suspect]
     Indication: BONE MARROW CONDITIONING REGIMEN
     Dosage: 110 MG, QD
     Route: 042
     Dates: start: 20091130, end: 20091201
  2. CICLOSPORIN [Suspect]
     Indication: APLASTIC ANAEMIA
     Dosage: UNK
     Route: 065
     Dates: start: 20080831
  3. CICLOSPORIN [Suspect]
     Indication: PROPHYLAXIS AGAINST GRAFT VERSUS HOST DISEASE
  4. FLUDARABINE PHOSPHATE [Concomitant]
     Indication: BONE MARROW CONDITIONING REGIMEN
     Dosage: UNK
     Route: 065
     Dates: start: 20090112, end: 20091204
  5. CYCLOPHOSPHAMIDE [Concomitant]
     Indication: BONE MARROW CONDITIONING REGIMEN
     Dosage: UNK
     Route: 065
     Dates: start: 20091201, end: 20091204
  6. CIPROFLOXACIN [Concomitant]
     Indication: INFECTION PROPHYLAXIS
     Dosage: UNK
     Route: 065
     Dates: start: 20091125, end: 20091210
  7. FLUCONAZOLE [Concomitant]
     Indication: INFECTION PROPHYLAXIS
     Dosage: UNK
     Route: 065
     Dates: start: 20091125, end: 20091210
  8. ACICLOVIR [Concomitant]
     Indication: INFECTION PROPHYLAXIS
     Dosage: UNK
     Route: 065
     Dates: start: 20091201, end: 20091231

REACTIONS (7)
  - Fluid retention [Recovered/Resolved]
  - Graft versus host disease [Unknown]
  - Chronic graft versus host disease [Unknown]
  - Chronic graft versus host disease [Unknown]
  - Aspergillus infection [Recovered/Resolved]
  - Drug eruption [Recovered/Resolved]
  - Ventricular arrhythmia [Recovered/Resolved]
